FAERS Safety Report 6633136-5 (Version None)
Quarter: 2010Q1

REPORT INFORMATION
  Report Type: 
  Country: None (occurrence: None)
  Receive Date: 20100312
  Receipt Date: 20100302
  Transmission Date: 20100710
  Serious: Yes (Hospitalization)
  Sender: FDA-Public Use
  Company Number: PHHY2010IT04699

PATIENT
  Sex: Female

DRUGS (6)
  1. COTAREG [Suspect]
     Dosage: 160 MG
     Route: 048
     Dates: start: 20081226, end: 20091226
  2. AMLODIPINE BESYLATE [Suspect]
     Dosage: 10 MG
     Route: 048
     Dates: start: 20081226, end: 20091226
  3. BISOPROLOL FUMARATE [Suspect]
     Dosage: 3.75 MG DAILY
     Route: 048
     Dates: start: 20081226, end: 20091226
  4. ATORVASTATIN CALCIUM [Concomitant]
     Dosage: UNK
     Dates: start: 20081226, end: 20091226
  5. RANITIDINE [Concomitant]
     Dosage: UNK
     Dates: start: 20081226, end: 20091226
  6. ASPIRIN [Concomitant]
     Dosage: UNK
     Route: 048
     Dates: start: 20081226, end: 20091226

REACTIONS (2)
  - SINUS BRADYCARDIA [None]
  - SYNCOPE [None]
